FAERS Safety Report 14640956 (Version 1)
Quarter: 2018Q1

REPORT INFORMATION
  Report Type: Spontaneous
  Country: US (occurrence: US)
  Receive Date: 20180314
  Receipt Date: 20180314
  Transmission Date: 20180509
  Serious: No
  Sender: FDA-Public Use
  Company Number: None

PATIENT
  Age: 57 Year
  Sex: Female
  Weight: 54 kg

DRUGS (1)
  1. SUMATRIPTAN INJECTION USP (AUTOINJECTOR) 6 MG/0.5 ML [Suspect]
     Active Substance: SUMATRIPTAN SUCCINATE
     Indication: MIGRAINE WITHOUT AURA
     Dosage: ?          QUANTITY:1 INJECTION(S);?
     Route: 058

REACTIONS (2)
  - Burning sensation [None]
  - Rash erythematous [None]

NARRATIVE: CASE EVENT DATE: 20180314
